FAERS Safety Report 17219251 (Version 1)
Quarter: 2020Q1

REPORT INFORMATION
  Report Type: Spontaneous
  Country: US (occurrence: US)
  Receive Date: 20191230
  Receipt Date: 20191230
  Transmission Date: 20200409
  Serious: Yes (Death)
  Sender: FDA-Public Use
  Company Number: None

PATIENT
  Age: 93 Year
  Sex: Female
  Weight: 49.86 kg

DRUGS (15)
  1. CALCIUM + D [Concomitant]
     Active Substance: CALCIUM\VITAMIN D
  2. MULTIPLE VITAMINS [Concomitant]
     Active Substance: VITAMINS
  3. ASPIRIN 81 [Concomitant]
     Active Substance: ASPIRIN
  4. FERROUS SULFATE. [Concomitant]
     Active Substance: FERROUS SULFATE
  5. RANITIDINE HCL [Concomitant]
     Active Substance: RANITIDINE HYDROCHLORIDE
  6. ACETAMINOPHEN ER [Concomitant]
     Active Substance: ACETAMINOPHEN
  7. ATORVASTATIN CALCIUM. [Concomitant]
     Active Substance: ATORVASTATIN CALCIUM
  8. HYDROXYUREA. [Concomitant]
     Active Substance: HYDROXYUREA
  9. ARICEPT [Concomitant]
     Active Substance: DONEPEZIL HYDROCHLORIDE
  10. MEMANTINE HCL [Concomitant]
     Active Substance: MEMANTINE
  11. SENNA LAXATIVE [Concomitant]
     Active Substance: SENNOSIDES
  12. VALSARTAN. [Concomitant]
     Active Substance: VALSARTAN
  13. LEVOTHYROXINE SODIUM. [Concomitant]
     Active Substance: LEVOTHYROXINE SODIUM
  14. IMATINIB MESYLATE. [Suspect]
     Active Substance: IMATINIB MESYLATE
     Indication: CHRONIC MYELOID LEUKAEMIA
     Route: 048
     Dates: start: 20190329, end: 20191228
  15. BISACODYL EC [Concomitant]
     Active Substance: BISACODYL

REACTIONS (1)
  - Death [None]

NARRATIVE: CASE EVENT DATE: 20191228
